FAERS Safety Report 19109689 (Version 1)
Quarter: 2021Q2

REPORT INFORMATION
  Report Type: Spontaneous
  Country: IT (occurrence: IT)
  Receive Date: 20210408
  Receipt Date: 20210408
  Transmission Date: 20210717
  Serious: Yes (Other)
  Sender: FDA-Public Use
  Company Number: PHBS1998XX17449

PATIENT
  Age: 50 Year
  Sex: Male
  Weight: 70 kg

DRUGS (11)
  1. PREDNISONE. [Suspect]
     Active Substance: PREDNISONE
     Indication: IMMUNOSUPPRESSION
     Dosage: 30 TO 15 MG/DAY
     Route: 065
  2. SANDIMMUNE [Suspect]
     Active Substance: CYCLOSPORINE
     Dosage: 6 MG/KG, QD
     Route: 042
  3. SANDIMMUNE [Suspect]
     Active Substance: CYCLOSPORINE
     Dosage: 14 MG/KG, QD
     Route: 048
  4. METHYLPREDNISOLONE SODIUM SUCCINATE. [Suspect]
     Active Substance: METHYLPREDNISOLONE SODIUM SUCCINATE
     Indication: TRANSPLANT REJECTION
     Dosage: 300 MG, TID, AT LOW DOSES
     Route: 040
  5. SANDIMMUNE [Suspect]
     Active Substance: CYCLOSPORINE
     Indication: RENAL TRANSPLANT
     Dosage: 1000 MG, UNKNOWN
     Route: 048
  6. METHYLPREDNISOLONE SODIUM SUCCINATE. [Suspect]
     Active Substance: METHYLPREDNISOLONE SODIUM SUCCINATE
     Indication: COMPLICATIONS OF TRANSPLANT SURGERY
  7. METHYLPREDNISOLONE SODIUM SUCCINATE. [Suspect]
     Active Substance: METHYLPREDNISOLONE SODIUM SUCCINATE
     Indication: IMMUNOSUPPRESSION
  8. SANDIMMUNE [Suspect]
     Active Substance: CYCLOSPORINE
     Dosage: 10 TO 5 MG/KG/DAY
     Route: 065
  9. PREDNISONE. [Suspect]
     Active Substance: PREDNISONE
     Indication: RENAL TRANSPLANT
     Dosage: 10 MG, QD
     Route: 065
     Dates: start: 198407
  10. PREDNISONE. [Suspect]
     Active Substance: PREDNISONE
     Dosage: 0.4 MG/KG, 1X/DAY
     Route: 065
  11. SANDIMMUNE [Suspect]
     Active Substance: CYCLOSPORINE
     Indication: IMMUNOSUPPRESSION
     Dosage: UNK UNK, QD
     Route: 065
     Dates: start: 198407

REACTIONS (3)
  - Transplant rejection [Unknown]
  - Renal tubular necrosis [Recovered/Resolved]
  - Kaposi^s sarcoma [Recovering/Resolving]

NARRATIVE: CASE EVENT DATE: 1984
